FAERS Safety Report 5730784-1 (Version None)
Quarter: 2008Q2

REPORT INFORMATION
  Report Type: 
  Country: None (occurrence: None)
  Receive Date: 20080507
  Receipt Date: 20080425
  Transmission Date: 20081010
  Serious: Yes (Other)
  Sender: FDA-Public Use
  Company Number: US-PFIZER INC-2008026591

PATIENT
  Sex: Male
  Weight: 89.4 kg

DRUGS (2)
  1. CHANTIX [Suspect]
     Indication: TOBACCO ABUSE
  2. PREVACID [Concomitant]
     Route: 048

REACTIONS (10)
  - FATIGUE [None]
  - FIBROMYALGIA [None]
  - JUVENILE ARTHRITIS [None]
  - MYALGIA [None]
  - POLYARTHRITIS [None]
  - PYREXIA [None]
  - RAYNAUD'S PHENOMENON [None]
  - RHEUMATOID ARTHRITIS [None]
  - RHEUMATOID FACTOR INCREASED [None]
  - WEIGHT DECREASED [None]
